FAERS Safety Report 12959597 (Version 2)
Quarter: 2018Q1

REPORT INFORMATION
  Report Type: Spontaneous
  Country: US (occurrence: US)
  Receive Date: 20161121
  Receipt Date: 20180312
  Transmission Date: 20180508
  Serious: Yes (Hospitalization, Disabling)
  Sender: FDA-Public Use
  Company Number: US-ENDO PHARMACEUTICALS INC.-2016-005172

PATIENT
  Age: 59 Year
  Sex: Male
  Weight: 63.49 kg

DRUGS (2)
  1. FORTESTA [Suspect]
     Active Substance: TESTOSTERONE
     Indication: ANDROGEN REPLACEMENT THERAPY
     Dosage: 2 PUMPS PER DAY
     Route: 061
     Dates: start: 201311, end: 201406
  2. AXIRON [Suspect]
     Active Substance: TESTOSTERONE
     Indication: ANDROGEN REPLACEMENT THERAPY
     Dosage: UNK, UNK
     Route: 065
     Dates: start: 201308, end: 201410

REACTIONS (8)
  - Anaemia [Unknown]
  - Limb injury [Unknown]
  - Joint dislocation [Unknown]
  - Pleural effusion [Unknown]
  - Cerebrovascular accident [Not Recovered/Not Resolved]
  - Road traffic accident [Unknown]
  - Rib fracture [Unknown]
  - Alcohol withdrawal syndrome [Unknown]

NARRATIVE: CASE EVENT DATE: 20140606
